FAERS Safety Report 14511214 (Version 1)
Quarter: 2018Q1

REPORT INFORMATION
  Report Type: Spontaneous
  Country: VE (occurrence: VE)
  Receive Date: 20180209
  Receipt Date: 20180209
  Transmission Date: 20180509
  Serious: Yes (Other)
  Sender: FDA-Public Use
  Company Number: VE-PFIZER INC-2018056251

PATIENT
  Age: 46 Year
  Sex: Male

DRUGS (7)
  1. RISPEN [Concomitant]
     Dosage: 2 MG, HS
     Route: 048
  2. DILANTIN [Suspect]
     Active Substance: PHENYTOIN
     Indication: PERSONALITY DISORDER
  3. EPAMIN [Suspect]
     Active Substance: PHENYTOIN SODIUM
     Indication: ABNORMAL BEHAVIOUR
     Dosage: 400 MG, DAILY
     Dates: end: 201801
  4. EPAMIN [Suspect]
     Active Substance: PHENYTOIN SODIUM
     Indication: PERSONALITY DISORDER
  5. DILANTIN [Suspect]
     Active Substance: PHENYTOIN
     Indication: POST CONCUSSION SYNDROME
  6. DILANTIN [Suspect]
     Active Substance: PHENYTOIN
     Indication: ABNORMAL BEHAVIOUR
     Dosage: 400 MG, DAILY
  7. EPAMIN [Suspect]
     Active Substance: PHENYTOIN SODIUM
     Indication: POST CONCUSSION SYNDROME

REACTIONS (4)
  - Product use in unapproved indication [Unknown]
  - Seizure [Unknown]
  - Aggression [Unknown]
  - Restlessness [Unknown]

NARRATIVE: CASE EVENT DATE: 201801
